FAERS Safety Report 7769968-X (Version None)
Quarter: 2011Q3

REPORT INFORMATION
  Report Type: 
  Country: None (occurrence: None)
  Receive Date: 20110922
  Receipt Date: 20110913
  Transmission Date: 20111222
  Serious: Yes (Hospitalization)
  Sender: FDA-Public Use
  Company Number: JP-GLAXOSMITHKLINE-B0747909A

PATIENT
  Sex: Female

DRUGS (6)
  1. MUCOSTA [Concomitant]
     Indication: BIPOLAR DISORDER
     Dosage: 200MG PER DAY
     Route: 048
  2. ROHYPNOL [Concomitant]
     Indication: BIPOLAR DISORDER
     Dosage: 1MG PER DAY
     Route: 048
  3. REMERON [Concomitant]
     Indication: BIPOLAR DISORDER
     Dosage: 15MG PER DAY
     Route: 048
  4. DEPAKENE [Concomitant]
     Indication: BIPOLAR DISORDER
     Route: 048
  5. LAMICTAL [Suspect]
     Indication: BIPOLAR DISORDER
     Dosage: 25MG ALTERNATE DAYS
     Route: 048
     Dates: start: 20110701, end: 20110822
  6. LITHIUM CARBONATE [Concomitant]
     Indication: BIPOLAR DISORDER
     Dosage: 80MG PER DAY
     Route: 048

REACTIONS (9)
  - LYMPHADENOPATHY [None]
  - RASH MACULAR [None]
  - DRUG RASH WITH EOSINOPHILIA AND SYSTEMIC SYMPTOMS [None]
  - SEBORRHOEIC DERMATITIS [None]
  - ERYTHEMA [None]
  - FLUSHING [None]
  - SWELLING FACE [None]
  - PRURITUS [None]
  - PYREXIA [None]
